FAERS Safety Report 23244069 (Version 1)
Quarter: 2023Q4

REPORT INFORMATION
  Report Type: Spontaneous
  Country: US (occurrence: US)
  Receive Date: 20231130
  Receipt Date: 20231130
  Transmission Date: 20240110
  Serious: No
  Sender: FDA-Public Use
  Company Number: US-IBSA PHARMA INC.-2023IBS000467

PATIENT

DRUGS (3)
  1. TIROSINT [Suspect]
     Active Substance: LEVOTHYROXINE SODIUM
     Indication: Thyroid hormone replacement therapy
     Dosage: 88 MICROGRAM, EVERY DAY SKIPS EVERY SUNDAY AND ONE WEDNESDAY A MONTH
     Route: 048
  2. TIROSINT [Suspect]
     Active Substance: LEVOTHYROXINE SODIUM
     Dosage: 88 MICROGRAM, EVERY DAY SKIPS EVERY SUNDAY
     Route: 048
  3. ERGOCALCIFEROL [Concomitant]
     Active Substance: ERGOCALCIFEROL
     Indication: Product used for unknown indication
     Dosage: 1000 MICROGRAM

REACTIONS (4)
  - Middle ear effusion [Unknown]
  - Viral infection [Unknown]
  - Blood thyroid stimulating hormone increased [Unknown]
  - Weight decreased [Unknown]
